FAERS Safety Report 18629321 (Version 1)
Quarter: 2020Q4

REPORT INFORMATION
  Report Type: Spontaneous
  Country: US (occurrence: US)
  Receive Date: 20201217
  Receipt Date: 20201217
  Transmission Date: 20210114
  Serious: Yes (Other)
  Sender: FDA-Public Use
  Company Number: US-PURDUE-USA-2020-0179704

PATIENT
  Sex: Male

DRUGS (5)
  1. OXYCONTIN [Suspect]
     Active Substance: OXYCODONE HYDROCHLORIDE
     Dosage: UNK
     Route: 048
  2. OXYFAST [Suspect]
     Active Substance: OXYCODONE
     Indication: PRODUCT USED FOR UNKNOWN INDICATION
     Dosage: UNK
     Route: 065
  3. OXYCODONE HYDROCHLORIDE (SIMILAR TO NDA 22-272) [Suspect]
     Active Substance: OXYCODONE HYDROCHLORIDE
     Dosage: UNK
     Route: 048
  4. OXYCODONE HYDROCHLORIDE (SIMILAR TO NDA 22-272) [Suspect]
     Active Substance: OXYCODONE HYDROCHLORIDE
     Indication: NECK PAIN
     Dosage: 30 MG, UNK
     Route: 065
     Dates: start: 2006, end: 2013
  5. OXYCONTIN [Suspect]
     Active Substance: OXYCODONE HYDROCHLORIDE
     Indication: NECK PAIN
     Dosage: 80 MG, UNK
     Route: 048
     Dates: start: 2006, end: 2013

REACTIONS (4)
  - Myocardial infarction [Unknown]
  - Depression [Unknown]
  - Cardiac disorder [Unknown]
  - Drug dependence [Unknown]

NARRATIVE: CASE EVENT DATE: 2013
